FAERS Safety Report 5614854-4 (Version None)
Quarter: 2008Q1

REPORT INFORMATION
  Report Type: 
  Country: None (occurrence: None)
  Receive Date: 20080131
  Receipt Date: 20080115
  Transmission Date: 20080703
  Serious: Yes (Hospitalization, Other)
  Sender: FDA-Public Use
  Company Number: A-CH2007-18941

PATIENT
  Age: 1 Year
  Sex: Female
  Weight: 10.3 kg

DRUGS (4)
  1. TRACLEER [Suspect]
     Indication: PULMONARY HYPERTENSION
     Dosage: 6 MG, BID, ORAL; 4.5 MG, BID, ORAL
     Route: 048
     Dates: start: 20060706, end: 20071001
  2. TRACLEER [Suspect]
     Indication: PULMONARY HYPERTENSION
     Dosage: 6 MG, BID, ORAL; 4.5 MG, BID, ORAL
     Route: 048
     Dates: start: 20071001
  3. SILDENAFIL CITRATE [Concomitant]
  4. ESIDRIX [Concomitant]

REACTIONS (3)
  - DERMATITIS DIAPER [None]
  - POLYCYTHAEMIA [None]
  - THROMBOCYTOPENIA [None]
